FAERS Safety Report 21766472 (Version 1)
Quarter: 2022Q4

REPORT INFORMATION
  Report Type: Spontaneous
  Country: DE (occurrence: DE)
  Receive Date: 20221222
  Receipt Date: 20221222
  Transmission Date: 20230113
  Serious: Yes (Other)
  Sender: FDA-Public Use
  Company Number: DE-TAKEDA-2022TUS003560

PATIENT
  Sex: Male

DRUGS (6)
  1. PREDNISOLONE [Suspect]
     Active Substance: PREDNISOLONE
     Indication: Colitis ulcerative
     Dosage: UNK
     Route: 065
  2. ENTYVIO [Suspect]
     Active Substance: VEDOLIZUMAB
     Indication: Colitis ulcerative
     Dosage: UNK UNK, Q4W
     Route: 042
     Dates: start: 202107
  3. ENTYVIO [Suspect]
     Active Substance: VEDOLIZUMAB
     Dosage: UNK, Q2W (INJECTION)
     Route: 065
     Dates: start: 202110
  4. ENTYVIO [Suspect]
     Active Substance: VEDOLIZUMAB
     Dosage: UNK
     Route: 042
     Dates: start: 202201, end: 202206
  5. MESALAMINE [Suspect]
     Active Substance: MESALAMINE
     Indication: Colitis ulcerative
     Dosage: 4 G, QD
     Route: 065
  6. HYDROCORTISONE ACETATE [Suspect]
     Active Substance: HYDROCORTISONE ACETATE
     Indication: Colitis ulcerative
     Dosage: UNK
     Route: 065

REACTIONS (11)
  - Haematochezia [Unknown]
  - Colitis ulcerative [Recovering/Resolving]
  - Fatigue [Unknown]
  - Dry skin [Unknown]
  - Defaecation urgency [Unknown]
  - Dizziness [Unknown]
  - Rash [Unknown]
  - Frequent bowel movements [Unknown]
  - Blood cholesterol increased [Unknown]
  - Treatment failure [Unknown]
  - Drug effect less than expected [Unknown]
